FAERS Safety Report 6872414-1 (Version None)
Quarter: 2010Q3

REPORT INFORMATION
  Report Type: 
  Country: None (occurrence: None)
  Receive Date: 20100723
  Receipt Date: 20081219
  Transmission Date: 20110219
  Serious: Yes (Hospitalization, Other)
  Sender: FDA-Public Use
  Company Number: US-PFIZER INC-2008084314

PATIENT
  Sex: Female
  Weight: 96.145 kg

DRUGS (11)
  1. CHANTIX [Suspect]
  2. BENICAR [Concomitant]
     Dosage: UNK
  3. HYDROCHLOROTHIAZIDE [Concomitant]
     Dosage: UNK
  4. ATENOLOL [Concomitant]
     Dosage: UNK
  5. NIACIN [Concomitant]
     Dosage: UNK
  6. GLIPIZIDE [Concomitant]
     Dosage: UNK
  7. METFORMIN [Concomitant]
     Dosage: UNK
  8. TRAZODONE [Concomitant]
     Dosage: UNK
  9. BYETTA [Concomitant]
     Dosage: UNK
  10. LEXAPRO [Concomitant]
     Dosage: UNK
  11. SIMVASTATIN [Concomitant]
     Dosage: UNK

REACTIONS (6)
  - ABNORMAL BEHAVIOUR [None]
  - DELUSION [None]
  - INSOMNIA [None]
  - NIGHTMARE [None]
  - PSYCHOTIC DISORDER [None]
  - STRESS [None]
